FAERS Safety Report 9845318 (Version 1)
Quarter: 2014Q1

REPORT INFORMATION
  Report Type: Spontaneous
  Country: US (occurrence: None)
  Receive Date: 20140123
  Receipt Date: 20140123
  Transmission Date: 20141002
  Serious: No
  Sender: FDA-Public Use
  Company Number: None

PATIENT
  Age: 49 Year
  Sex: Female
  Weight: 88.45 kg

DRUGS (2)
  1. OXYCODONE / ACETAMINOPHEN [Suspect]
     Indication: MUSCLE STRAIN
     Dosage: 1 PILL AS NEEDED TAKEN BY MOUTH
     Route: 048
     Dates: start: 20140108, end: 20140121
  2. OXYCODONE / ACETAMINOPHEN [Suspect]
     Indication: TENDON DISORDER
     Dosage: 1 PILL AS NEEDED TAKEN BY MOUTH
     Route: 048
     Dates: start: 20140108, end: 20140121

REACTIONS (4)
  - Migraine [None]
  - Product substitution issue [None]
  - Product quality issue [None]
  - Vomiting [None]
